FAERS Safety Report 11927879 (Version 9)
Quarter: 2016Q3

REPORT INFORMATION
  Report Type: Spontaneous
  Country: HU (occurrence: HU)
  Receive Date: 20160119
  Receipt Date: 20160714
  Transmission Date: 20161109
  Serious: Yes (Other)
  Sender: FDA-Public Use
  Company Number: HU-PFIZER INC-2016022526

PATIENT
  Age: 71 Year
  Sex: Female

DRUGS (1)
  1. SUTENT [Suspect]
     Active Substance: SUNITINIB MALATE
     Indication: CLEAR CELL RENAL CELL CARCINOMA
     Dosage: 50 MG, 1X/DAY, CYCLIC, 4/2 SCHEME
     Route: 048
     Dates: start: 20151221

REACTIONS (6)
  - Goitre [Not Recovered/Not Resolved]
  - Periorbital oedema [Unknown]
  - Spinal osteoarthritis [Recovering/Resolving]
  - Clear cell renal cell carcinoma [Unknown]
  - Blood thyroid stimulating hormone increased [Unknown]
  - Disease progression [Unknown]

NARRATIVE: CASE EVENT DATE: 20160113
